FAERS Safety Report 18593258 (Version 4)
Quarter: 2021Q1

REPORT INFORMATION
  Report Type: Spontaneous
  Country: JP (occurrence: JP)
  Receive Date: 20201208
  Receipt Date: 20210113
  Transmission Date: 20210419
  Serious: Yes (Hospitalization)
  Sender: FDA-Public Use
  Company Number: JP-ELI_LILLY_AND_COMPANY-JP202012001354

PATIENT
  Sex: Female

DRUGS (2)
  1. DULOXETINE HYDROCHLORIDE. [Suspect]
     Active Substance: DULOXETINE HYDROCHLORIDE
     Indication: FIBROMYALGIA
     Dosage: 50 MG, DAILY
     Route: 064
  2. DULOXETINE HYDROCHLORIDE. [Suspect]
     Active Substance: DULOXETINE HYDROCHLORIDE
     Indication: FIBROMYALGIA
     Dosage: 50 MG, DAILY
     Route: 064

REACTIONS (11)
  - Tremor neonatal [Recovered/Resolved]
  - Neonatal hypoxia [Recovered/Resolved]
  - Protrusion tongue [Recovered/Resolved]
  - Neonatal seizure [Recovered/Resolved]
  - Staring [Recovered/Resolved]
  - Infantile vomiting [Recovered/Resolved]
  - Yawning [Recovered/Resolved]
  - Drug withdrawal syndrome neonatal [Recovered/Resolved]
  - Foetal exposure during pregnancy [Recovered/Resolved]
  - Drug exposure before pregnancy [Recovered/Resolved]
  - Psychomotor hyperactivity [Recovered/Resolved]

NARRATIVE: CASE EVENT DATE: 20201120
